FAERS Safety Report 11823548 (Version 2)
Quarter: 2016Q1

REPORT INFORMATION
  Report Type: Spontaneous
  Country: US (occurrence: US)
  Receive Date: 20151210
  Receipt Date: 20160122
  Transmission Date: 20160525
  Serious: No
  Sender: FDA-Public Use
  Company Number: US-LEO PHARMA-238912

PATIENT
  Age: 55 Year
  Sex: Male

DRUGS (1)
  1. PICATO [Suspect]
     Active Substance: INGENOL MEBUTATE
     Indication: ACTINIC KERATOSIS
     Dates: start: 20151130, end: 20151202

REACTIONS (10)
  - Eye swelling [Recovered/Resolved]
  - Eye swelling [Recovered/Resolved]
  - Application site pruritus [Recovered/Resolved]
  - Application site vesicles [Recovered/Resolved]
  - Application site swelling [Recovered/Resolved]
  - Application site scab [Recovered/Resolved]
  - Application site erythema [Recovered/Resolved]
  - Drug administered at inappropriate site [Unknown]
  - Application site pustules [Recovered/Resolved]
  - Application site ulcer [Recovered/Resolved]

NARRATIVE: CASE EVENT DATE: 20151201
